FAERS Safety Report 18583407 (Version 8)
Quarter: 2021Q3

REPORT INFORMATION
  Report Type: Report from Study
  Country: US (occurrence: US)
  Receive Date: 20201206
  Receipt Date: 20210910
  Transmission Date: 20211014
  Serious: Yes (Hospitalization)
  Sender: FDA-Public Use
  Company Number: NVSC2020US324534

PATIENT
  Age: 65 Year
  Sex: Male

DRUGS (3)
  1. KESIMPTA [Suspect]
     Active Substance: OFATUMUMAB
     Dosage: UNK
     Route: 065
     Dates: start: 20201129
  2. KESIMPTA [Suspect]
     Active Substance: OFATUMUMAB
     Dosage: UNK
     Route: 065
     Dates: start: 20201203
  3. KESIMPTA [Suspect]
     Active Substance: OFATUMUMAB
     Indication: RELAPSING-REMITTING MULTIPLE SCLEROSIS
     Dosage: 20 MG, QMO
     Route: 058
     Dates: start: 20201010

REACTIONS (11)
  - Dyspnoea [Recovering/Resolving]
  - Balance disorder [Unknown]
  - Pain [Unknown]
  - Vision blurred [Unknown]
  - Pneumonia [Recovered/Resolved]
  - Blood test abnormal [Unknown]
  - Gait disturbance [Recovering/Resolving]
  - Oropharyngeal pain [Unknown]
  - Dizziness [Unknown]
  - Movement disorder [Recovered/Resolved]
  - COVID-19 [Recovered/Resolved]

NARRATIVE: CASE EVENT DATE: 20201129
